FAERS Safety Report 7425499-8 (Version None)
Quarter: 2011Q2

REPORT INFORMATION
  Report Type: 
  Country: None (occurrence: None)
  Receive Date: 20110412
  Receipt Date: 20110330
  Transmission Date: 20111010
  Serious: Yes (Hospitalization)
  Sender: FDA-Public Use
  Company Number: 015470

PATIENT
  Sex: Female

DRUGS (3)
  1. CERTOLIZUMAB PEGOL (CERTOLIZUMAB PEGOL) [Suspect]
     Indication: CROHN'S DISEASE
     Dosage: SEE NIMAGE
     Route: 058
     Dates: start: 20040830, end: 20040927
  2. CERTOLIZUMAB PEGOL (CERTOLIZUMAB PEGOL) [Suspect]
     Indication: CROHN'S DISEASE
     Dosage: SEE NIMAGE
     Route: 058
     Dates: start: 20041024, end: 20050214
  3. CERTOLIZUMAB PEGOL (CERTOLIZUMAB PEGOL) [Suspect]
     Indication: CROHN'S DISEASE
     Dosage: SEE NIMAGE
     Route: 058
     Dates: start: 20050315

REACTIONS (10)
  - INTESTINAL FISTULA [None]
  - PERITONEAL ADHESIONS [None]
  - PANCREATITIS CHRONIC [None]
  - CHOLECYSTITIS CHRONIC [None]
  - CHOLELITHIASIS [None]
  - ABDOMINAL ABSCESS [None]
  - BLOOD BILIRUBIN DECREASED [None]
  - ESCHERICHIA INFECTION [None]
  - ABSCESS BACTERIAL [None]
  - PROTEIN TOTAL INCREASED [None]
